APPROVED DRUG PRODUCT: RANITIDINE HYDROCHLORIDE
Active Ingredient: RANITIDINE HYDROCHLORIDE
Strength: EQ 300MG BASE
Dosage Form/Route: TABLET;ORAL
Application: A074488 | Product #002
Applicant: ANI PHARMACEUTICALS INC
Approved: Jul 31, 1997 | RLD: No | RS: No | Type: DISCN